FAERS Safety Report 4393225-5 (Version None)
Quarter: 2004Q3

REPORT INFORMATION
  Report Type: 
  Country: None (occurrence: None)
  Receive Date: 20040702
  Receipt Date: 20040623
  Transmission Date: 20050211
  Serious: Yes (Hospitalization)
  Sender: FDA-Public Use
  Company Number: ES-JNJFOC-20040605926

PATIENT
  Age: 87 Year
  Sex: Male

DRUGS (2)
  1. HALOPERIDOL [Suspect]
     Indication: DRUG USE FOR UNKNOWN INDICATION
     Dosage: 10 GTT, IN 1 DAY, ORAL
     Route: 048
  2. AKINETON [Suspect]
     Indication: DRUG USE FOR UNKNOWN INDICATION
     Dosage: 4 MG, IN 1 DAY, ORAL
     Route: 048

REACTIONS (5)
  - ABDOMINAL PAIN [None]
  - ADRENAL ADENOMA [None]
  - DRUG INTERACTION [None]
  - GASTRIC DILATATION [None]
  - IMPAIRED GASTRIC EMPTYING [None]
